FAERS Safety Report 7626230-3 (Version None)
Quarter: 2011Q3

REPORT INFORMATION
  Report Type: 
  Country: None (occurrence: None)
  Receive Date: 20110721
  Receipt Date: 20110706
  Transmission Date: 20111222
  Serious: Yes (Other)
  Sender: FDA-Public Use
  Company Number: PHHY2011DK52681

PATIENT
  Sex: Female

DRUGS (8)
  1. EXELON [Suspect]
     Indication: PARKINSON'S DISEASE
     Dosage: 4.6 MG, UNK
     Route: 062
  2. CLOZAPINE [Concomitant]
     Indication: ANXIETY
  3. MADOPAR [Concomitant]
     Indication: PARKINSON'S DISEASE
     Dosage: 187.5 MG, UNK
  4. CLOZAPINE [Concomitant]
     Indication: HALLUCINATION
     Dosage: UNK UKN, UNK
  5. OXAZEPAM [Concomitant]
     Indication: ANXIETY
     Dosage: 15 MG, UNK
  6. EXELON [Suspect]
     Dosage: 9.5 MG, UNK
     Route: 062
  7. AKARIN [Concomitant]
     Indication: DEPRESSION
     Dosage: 10 MG, UNK
  8. VITAMIN D [Concomitant]
     Dosage: 35 UG, UNK

REACTIONS (2)
  - RASH ERYTHEMATOUS [None]
  - SUBCUTANEOUS ABSCESS [None]
